FAERS Safety Report 7947098-1 (Version None)
Quarter: 2011Q4

REPORT INFORMATION
  Report Type: 
  Country: None (occurrence: None)
  Receive Date: 20111129
  Receipt Date: 20111115
  Transmission Date: 20120403
  Serious: Yes (Other)
  Sender: FDA-Public Use
  Company Number: US-ASTRAZENECA-2011SE67763

PATIENT
  Age: 73 Year
  Sex: Female

DRUGS (1)
  1. NEXIUM [Suspect]
     Route: 048

REACTIONS (8)
  - CEREBROVASCULAR ACCIDENT [None]
  - ANEURYSM [None]
  - EXECUTIVE DYSFUNCTION [None]
  - FALL [None]
  - HEAD INJURY [None]
  - UPPER LIMB FRACTURE [None]
  - BRAIN INJURY [None]
  - CEREBRAL THROMBOSIS [None]
